FAERS Safety Report 16324280 (Version 3)
Quarter: 2019Q3

REPORT INFORMATION
  Report Type: Spontaneous
  Country: PT (occurrence: PT)
  Receive Date: 20190517
  Receipt Date: 20190918
  Transmission Date: 20191004
  Serious: Yes (Death, Life-Threatening, Hospitalization, Other)
  Sender: FDA-Public Use
  Company Number: PT-AUROBINDO-AUR-APL-2019-027553

PATIENT
  Age: 49 Year
  Sex: Female

DRUGS (18)
  1. MEROPENEM. [Suspect]
     Active Substance: MEROPENEM
     Dosage: 1 GRAM, 3 TIMES A DAY, 1 G, Q8H
     Route: 065
     Dates: start: 2017
  2. TIGECYCLINE. [Concomitant]
     Active Substance: TIGECYCLINE
     Dosage: 100 MILLIGRAM, TWO TIMES A DAY, LOADING DOSE
     Route: 042
     Dates: start: 20170712
  3. MEROPENEM. [Suspect]
     Active Substance: MEROPENEM
     Indication: KLEBSIELLA INFECTION
     Dosage: 2 GRAM, 3 TIMES A DAY, DOSE INCREAESD 2 G, Q8H IN A 3-H EXTENDED INFUSION
     Route: 065
     Dates: start: 2017
  4. MEROPENEM. [Suspect]
     Active Substance: MEROPENEM
     Dosage: 1 GRAM, 3 TIMES A DAY, 1 G, Q8H
     Route: 065
     Dates: start: 20170627
  5. COLISTIN [Suspect]
     Active Substance: COLISTIN
     Indication: KLEBSIELLA INFECTION
     Dosage: UNK, 5 MU IV Q12H
     Route: 042
     Dates: start: 2017
  6. COLISTIN [Suspect]
     Active Substance: COLISTIN
     Dosage: UNK, TWO TIMES A DAY,5 M[IU], MAINTENANCE DOSE
     Route: 042
     Dates: start: 20170712
  7. DEXAMETHASONE. [Suspect]
     Active Substance: DEXAMETHASONE
     Indication: ACUTE LYMPHOCYTIC LEUKAEMIA
     Dosage: UNK, 1 CYCLE, HIGH DOSE
     Route: 065
     Dates: start: 2017
  8. AMIKACIN SULFATE. [Suspect]
     Active Substance: AMIKACIN SULFATE
     Dosage: 1 GRAM, ONCE A DAY
     Route: 065
     Dates: start: 20170627
  9. COLISTIN [Suspect]
     Active Substance: COLISTIN
     Dosage: UNK, A LOADING DOSE OF 8 MU IVUNK
     Route: 042
     Dates: start: 2017
  10. COLISTIN [Suspect]
     Active Substance: COLISTIN
     Dosage: UNK,8 M[IU], LOADING DOSE
     Route: 042
     Dates: start: 20170627
  11. COLISTIN [Suspect]
     Active Substance: COLISTIN
     Dosage: UNK UNK, TWO TIMES A DAY,4 M[IU], MAINTENANCE DOSE
     Route: 042
     Dates: start: 20170627
  12. MEROPENEM. [Suspect]
     Active Substance: MEROPENEM
     Dosage: 2 GRAM, 3 TIMES A DAY, DOSE INCREAESD 2 G, Q8H IN A 3-H EXTENDED INFUSION
     Route: 065
     Dates: start: 20170629
  13. DOXORUBICIN [Suspect]
     Active Substance: DOXORUBICIN
     Indication: ACUTE LYMPHOCYTIC LEUKAEMIA
     Dosage: UNK, 1 CYCLE. HIGH DOSE
     Route: 065
     Dates: start: 2017
  14. CYCLOPHOSPHAMIDE. [Suspect]
     Active Substance: CYCLOPHOSPHAMIDE
     Indication: ACUTE LYMPHOCYTIC LEUKAEMIA
     Dosage: UNK,1 CYCLE, HIGH DOSE
     Route: 065
     Dates: start: 2017
  15. VINCRISTINE SULFATE. [Suspect]
     Active Substance: VINCRISTINE SULFATE
     Indication: ACUTE LYMPHOCYTIC LEUKAEMIA
     Dosage: UNK, 1 CYCLE, HIGH DOSE
     Route: 065
     Dates: start: 2017
  16. COLISTIN [Suspect]
     Active Substance: COLISTIN
     Dosage: UNK, FOLLOWED BY A MAINTENANCE DOSE OF 4 MU IV Q12HUNK
     Route: 042
     Dates: start: 2017
  17. AMIKACIN SULFATE. [Suspect]
     Active Substance: AMIKACIN SULFATE
     Indication: KLEBSIELLA INFECTION
     Dosage: 1 GRAM, ONCE A DAY, 1 G, QD
     Route: 065
     Dates: start: 2017
  18. TIGECYCLINE. [Concomitant]
     Active Substance: TIGECYCLINE
     Indication: KLEBSIELLA INFECTION
     Dosage: 200 MILLIGRAM, LOADING DOSE
     Route: 042
     Dates: start: 20170712

REACTIONS (10)
  - Klebsiella infection [Fatal]
  - Neutropenic sepsis [Fatal]
  - Gastrointestinal inflammation [Not Recovered/Not Resolved]
  - Drug resistance [Fatal]
  - Multiple organ dysfunction syndrome [Fatal]
  - Klebsiella bacteraemia [Fatal]
  - Neutropenia [Fatal]
  - Neutropenic colitis [Fatal]
  - Condition aggravated [Fatal]
  - Osteomyelitis bacterial [Fatal]

NARRATIVE: CASE EVENT DATE: 2017
